FAERS Safety Report 7604339-8 (Version None)
Quarter: 2011Q3

REPORT INFORMATION
  Report Type: 
  Country: None (occurrence: None)
  Receive Date: 20110712
  Receipt Date: 20110701
  Transmission Date: 20111222
  Serious: Yes (Other)
  Sender: FDA-Public Use
  Company Number: PHHY2011FR59113

PATIENT
  Age: 36 Year
  Sex: Male

DRUGS (5)
  1. TRILEPTAL [Suspect]
     Dosage: 450 MG, DAILY
  2. RISPERIDONE [Concomitant]
  3. CLONAZEPAM [Concomitant]
     Dosage: 1 DF, QD
  4. TRILEPTAL [Suspect]
     Dosage: 150 MG, DAILY
  5. LOXAPINE HCL [Concomitant]

REACTIONS (1)
  - DYSPHEMIA [None]
